FAERS Safety Report 6851073-8 (Version None)
Quarter: 2010Q3

REPORT INFORMATION
  Report Type: 
  Country: None (occurrence: None)
  Receive Date: 20100716
  Receipt Date: 20071024
  Transmission Date: 20110219
  Serious: No
  Sender: FDA-Public Use
  Company Number: US-PFIZER INC-2007091452

PATIENT
  Sex: Female
  Weight: 63.636 kg

DRUGS (8)
  1. CHANTIX [Suspect]
     Indication: SMOKING CESSATION THERAPY
     Dates: start: 20071001
  2. CALCIUM [Concomitant]
  3. MULTI-VITAMINS [Concomitant]
  4. SYNTHROID [Concomitant]
  5. PREVACID [Concomitant]
  6. TRILEPTAL [Concomitant]
  7. NEURONTIN [Concomitant]
  8. LEXAPRO [Concomitant]

REACTIONS (5)
  - ASTHENIA [None]
  - FLATULENCE [None]
  - HEADACHE [None]
  - MALAISE [None]
  - NAUSEA [None]
